FAERS Safety Report 13740081 (Version 1)
Quarter: 2017Q3

REPORT INFORMATION
  Report Type: Spontaneous
  Country: US (occurrence: US)
  Receive Date: 20170711
  Receipt Date: 20170711
  Transmission Date: 20171127
  Serious: No
  Sender: FDA-Public Use
  Company Number: US-STRIDES ARCOLAB LIMITED-2017SP006317

PATIENT

DRUGS (2)
  1. PACLITAXEL. [Suspect]
     Active Substance: PACLITAXEL
     Indication: BREAST CANCER METASTATIC
     Dosage: 100 MG/M2, UNKNOWN
     Route: 042
  2. IMIQUIMOD. [Suspect]
     Active Substance: IMIQUIMOD
     Indication: BREAST CANCER METASTATIC
     Dosage: UNK
     Route: 061

REACTIONS (7)
  - Dermatitis acneiform [Unknown]
  - Alopecia [Unknown]
  - Nail disorder [Unknown]
  - Pruritus [Unknown]
  - Skin exfoliation [Unknown]
  - Palmar-plantar erythrodysaesthesia syndrome [Unknown]
  - Acne [Unknown]
